FAERS Safety Report 24570174 (Version 2)
Quarter: 2024Q4

REPORT INFORMATION
  Report Type: Spontaneous
  Country: CN (occurrence: CN)
  Receive Date: 20241031
  Receipt Date: 20241107
  Transmission Date: 20250115
  Serious: Yes (Other)
  Sender: NOVARTIS
  Company Number: CN-002147023-NVSC2024CN210140

PATIENT
  Age: 71 Year
  Sex: Female

DRUGS (1)
  1. TEGRETOL [Suspect]
     Active Substance: CARBAMAZEPINE
     Indication: Trigeminal neuralgia
     Dosage: 200 MG, TID
     Route: 048
     Dates: start: 20240815, end: 20240930

REACTIONS (5)
  - Hepatic function abnormal [Recovering/Resolving]
  - Drug eruption [Recovering/Resolving]
  - Rash [Recovering/Resolving]
  - Papule [Unknown]
  - Pruritus [Unknown]

NARRATIVE: CASE EVENT DATE: 20240926
